FAERS Safety Report 5808977-4 (Version None)
Quarter: 2008Q3

REPORT INFORMATION
  Report Type: 
  Country: None (occurrence: None)
  Receive Date: 20080710
  Receipt Date: 20080710
  Transmission Date: 20090109
  Serious: No
  Sender: FDA-Public Use
  Company Number: None

PATIENT
  Age: 47 Year
  Sex: Male
  Weight: 74.8435 kg

DRUGS (1)
  1. KEFLEX [Suspect]
     Indication: CYST
     Dosage: 500MG 2X/DAY PO
     Route: 048
     Dates: start: 20070520, end: 20070630

REACTIONS (2)
  - TENDON RUPTURE [None]
  - TENDONITIS [None]
